FAERS Safety Report 11656365 (Version 4)
Quarter: 2015Q4

REPORT INFORMATION
  Report Type: Report from Study
  Country: CA (occurrence: CA)
  Receive Date: 20151023
  Receipt Date: 20151218
  Transmission Date: 20160304
  Serious: Yes (Hospitalization, Other)
  Sender: FDA-Public Use
  Company Number: CA-KADMON PHARMACEUTICALS, LLC-KAD201510-003656

PATIENT
  Sex: Female
  Weight: 69.9 kg

DRUGS (6)
  1. RIBAVIRIN. [Suspect]
     Active Substance: RIBAVIRIN
     Indication: HEPATITIS C
     Route: 048
     Dates: start: 20150922
  2. TYLENOL WITH CODEINE [Suspect]
     Active Substance: ACETAMINOPHEN\CODEINE PHOSPHATE
  3. VITAMIN D [Concomitant]
     Active Substance: CHOLECALCIFEROL
  4. ACETAMINOPHEN W/CODEINE (LENOLTEC WITH CODEINE NO. 1) [Concomitant]
  5. HOLKIRA PAK [Suspect]
     Active Substance: DASABUVIR\OMBITASVIR\PARITAPREVIR\RITONAVIR
     Indication: HEPATITIS C
     Dosage: 12.5/75/50 MG TABLETS ONCE DAILY AND ONE DASABUVIR 250 MG TABLET TWICE DAILY
     Route: 048
     Dates: start: 20150922
  6. ZOPICLONE [Suspect]
     Active Substance: ZOPICLONE

REACTIONS (11)
  - Hepatic encephalopathy [Unknown]
  - Blood bilirubin increased [Unknown]
  - Feeding disorder [Not Recovered/Not Resolved]
  - Confusional state [Unknown]
  - Potentiating drug interaction [Unknown]
  - Jaundice [Unknown]
  - Cardiac failure congestive [Unknown]
  - International normalised ratio increased [Unknown]
  - Fatigue [Unknown]
  - Atrial fibrillation [Unknown]
  - Insomnia [Not Recovered/Not Resolved]

NARRATIVE: CASE EVENT DATE: 2015
